FAERS Safety Report 19908467 (Version 2)
Quarter: 2021Q4

REPORT INFORMATION
  Report Type: Spontaneous
  Country: NO (occurrence: NO)
  Receive Date: 20211001
  Receipt Date: 20211019
  Transmission Date: 20220303
  Serious: Yes (Death)
  Sender: FDA-Public Use
  Company Number: None

PATIENT
  Age: 68 Year
  Sex: Female

DRUGS (2)
  1. IBRANCE [Suspect]
     Active Substance: PALBOCICLIB
     Indication: Breast cancer metastatic
     Dosage: 100MG X 1 (3 WEEKS WITH TREATMENT AND 1 WEEK BREAK BEFORE NEW CYCLE)
     Route: 048
     Dates: start: 20210520
  2. FASLODEX [Suspect]
     Active Substance: FULVESTRANT
     Indication: Breast cancer metastatic
     Dosage: 500MG STARTING DOSE - PLANNED TO CONTINUE WITH 250 MG X 1 EVERY 4TH WEEK
     Route: 030
     Dates: start: 20210520

REACTIONS (3)
  - Dehydration [Fatal]
  - Diarrhoea [Fatal]
  - Colitis [Fatal]

NARRATIVE: CASE EVENT DATE: 20210501
